FAERS Safety Report 26109741 (Version 2)
Quarter: 2025Q4

REPORT INFORMATION
  Report Type: Spontaneous
  Country: CA (occurrence: CA)
  Receive Date: 20251201
  Receipt Date: 20251224
  Transmission Date: 20260117
  Serious: Yes (Hospitalization)
  Sender: BAUSCH AND LOMB
  Company Number: CA-BAUSCH-BH-2025-021070

PATIENT
  Age: 82 Year
  Sex: Female

DRUGS (2)
  1. METRONIDAZOLE [Suspect]
     Active Substance: METRONIDAZOLE
     Indication: Cellulitis
     Route: 065
     Dates: start: 20251010, end: 20251017
  2. METRONIDAZOLE [Suspect]
     Active Substance: METRONIDAZOLE
     Indication: Product use in unapproved indication

REACTIONS (7)
  - Haemorrhage [Recovered/Resolved]
  - Renal disorder [Unknown]
  - Faeces discoloured [Unknown]
  - Urinary tract infection [Unknown]
  - Abdominal pain [Unknown]
  - Product prescribing issue [Unknown]
  - Product use in unapproved indication [Unknown]

NARRATIVE: CASE EVENT DATE: 20250101
